FAERS Safety Report 21727686 (Version 1)
Quarter: 2022Q4

REPORT INFORMATION
  Report Type: Spontaneous
  Country: BE (occurrence: BE)
  Receive Date: 20221214
  Receipt Date: 20221214
  Transmission Date: 20230112
  Serious: Yes (Hospitalization, Other)
  Sender: FDA-Public Use
  Company Number: None

PATIENT
  Age: 63 Year
  Sex: Male
  Weight: 67.5 kg

DRUGS (11)
  1. IVACAFTOR\TEZACAFTOR [Suspect]
     Active Substance: IVACAFTOR\TEZACAFTOR
     Indication: Cystic fibrosis
     Dosage: 1 TABLET (100 MG TEZACAFTOR/150 MG IVACAFTOR) QD (MORNING)
     Route: 048
     Dates: start: 20210810, end: 20210817
  2. KALYDECO [Suspect]
     Active Substance: IVACAFTOR
     Indication: Cystic fibrosis
     Dosage: 150 MG, QD (EVENING)
     Route: 048
     Dates: start: 20210810, end: 20210817
  3. BECLOMETHASONE DIPROPIONATE\FORMOTEROL FUMARATE [Concomitant]
     Active Substance: BECLOMETHASONE DIPROPIONATE\FORMOTEROL FUMARATE
     Dosage: 100/6 MG/DOSE, AEROSOL, SOL.1 PUFF 2 PER DAY VIA VOLUMATIC
  4. CREON [Concomitant]
     Active Substance: PANCRELIPASE AMYLASE\PANCRELIPASE LIPASE\PANCRELIPASE PROTEASE
     Dosage: 25000, +- 3 TABLETS / MEAL
  5. NASONEX [Concomitant]
     Active Substance: MOMETASONE FUROATE
  6. PULMOZYME [Concomitant]
     Active Substance: DORNASE ALFA
     Dosage: AEROSOLS 1 X PER DAY - NEBUSAL 7% (NO LONGER DILUTE)
  7. PANTOMED [Concomitant]
     Dosage: 40 MG, QD
  8. BISOPROLOL [Concomitant]
     Active Substance: BISOPROLOL
     Dosage: 1.25 MG 2 X PER DAY BY MOUTH
     Route: 048
  9. VENTOLIN [Concomitant]
     Active Substance: ALBUTEROL SULFATE
     Dosage: VENTOLIN 2 DROPS 1 X PER DAY
  10. CHOLECALCIFEROL [Concomitant]
     Active Substance: CHOLECALCIFEROL
     Dosage: 1 X PER DAY (BLUE PILL)
  11. AZITHROMYCIN [Concomitant]
     Active Substance: AZITHROMYCIN
     Dosage: 250 MG (1 TABLET EVERY 2 DAYS)

REACTIONS (4)
  - Supraventricular extrasystoles [Recovering/Resolving]
  - Arrhythmia [Recovering/Resolving]
  - Ventricular extrasystoles [Recovering/Resolving]
  - Malaise [Recovering/Resolving]

NARRATIVE: CASE EVENT DATE: 20210801
